FAERS Safety Report 23304134 (Version 1)
Quarter: 2023Q4

REPORT INFORMATION
  Report Type: Spontaneous
  Country: GR (occurrence: GR)
  Receive Date: 20231218
  Receipt Date: 20231218
  Transmission Date: 20240110
  Serious: Yes (Hospitalization, Other)
  Sender: FDA-Public Use
  Company Number: GR-EPICPHARMA-GR-2023EPCLIT01828

PATIENT
  Age: 55 Day
  Sex: Female

DRUGS (2)
  1. FUROSEMIDE [Suspect]
     Active Substance: FUROSEMIDE
     Indication: Hypercalcaemia
     Route: 065
  2. METHYLPREDNISOLONE [Suspect]
     Active Substance: METHYLPREDNISOLONE
     Indication: Hypercalcaemia
     Route: 042

REACTIONS (4)
  - Nephrocalcinosis [Not Recovered/Not Resolved]
  - Hypercalcaemia [Recovered/Resolved]
  - Rebound effect [Recovered/Resolved]
  - Drug ineffective for unapproved indication [Unknown]
